FAERS Safety Report 6701218-5 (Version None)
Quarter: 2010Q2

REPORT INFORMATION
  Report Type: 
  Country: None (occurrence: None)
  Receive Date: 20100427
  Receipt Date: 20100330
  Transmission Date: 20101027
  Serious: Yes (Hospitalization)
  Sender: FDA-Public Use
  Company Number: 09-12-00269

PATIENT
  Age: 68 Year
  Sex: Female

DRUGS (14)
  1. IMC-1121B (ANTI-VEGFR2 MAB), 40166 [Suspect]
     Indication: COLORECTAL CANCER METASTATIC
     Dosage: 632 MG
     Route: 042
     Dates: start: 20090611, end: 20090923
  2. OXALIPLATIN (OXALIPLATIN), UNKNOWN [Suspect]
     Indication: COLORECTAL CANCER METASTATIC
     Dosage: 121.16 MG
     Route: 042
     Dates: start: 20090611, end: 20090923
  3. FLUOROURACIL (FLUOROURACIL), UNKNOWN [Suspect]
     Indication: COLORECTAL CANCER METASTATIC
     Dosage: 3355.2 MG
     Route: 042
     Dates: start: 20090611, end: 20090923
  4. FOLINIC ACID (FOLINIC ACID), UNKNOWN [Suspect]
     Indication: COLORECTAL CANCER METASTATIC
     Dosage: 745.6 MG
     Route: 042
     Dates: start: 20090611, end: 20090923
  5. ACETAMINOPHEN [Concomitant]
  6. METOCLOPRAMIDE (METOCLOPRAMIDE) [Concomitant]
  7. LEVOTIROXINA (LEVOTHYROXINE SODIUM) [Concomitant]
  8. OMEPRAZOLE [Concomitant]
  9. DIHYDROERGOCRISTINE MESILATE + PIRACETAM (DIHYDROERGOCRISTINE MESILATE [Concomitant]
  10. FORTECORTIN (DEXAMETHASONE) (DEXAMETHASONE) [Concomitant]
  11. SIMVASTATIN [Concomitant]
  12. MEGACE [Concomitant]
  13. NOLOTIL (METAMIZOLE MAGNESIUM) [Concomitant]
  14. EUTIROX (LEVOTHYROXINE) (LEVOTHYROXINE) [Concomitant]

REACTIONS (14)
  - ABDOMINAL PAIN [None]
  - ASTHENIA [None]
  - BLOOD GLUCOSE DECREASED [None]
  - COLON NEOPLASM [None]
  - CONSTIPATION [None]
  - DEEP VEIN THROMBOSIS [None]
  - DIARRHOEA [None]
  - DYSPNOEA [None]
  - HAEMATOCRIT DECREASED [None]
  - HAEMOGLOBIN DECREASED [None]
  - OXYGEN SATURATION DECREASED [None]
  - PLATELET COUNT DECREASED [None]
  - PO2 DECREASED [None]
  - PULMONARY EMBOLISM [None]
